FAERS Safety Report 17160561 (Version 1)
Quarter: 2019Q4

REPORT INFORMATION
  Report Type: Spontaneous
  Country: US (occurrence: US)
  Receive Date: 20191216
  Receipt Date: 20191216
  Transmission Date: 20200122
  Serious: Yes (Death)
  Sender: FDA-Public Use
  Company Number: US-009507513-1912USA006023

PATIENT
  Age: 55 Year
  Sex: Female

DRUGS (7)
  1. METHAMPHETAMINE HYDROCHLORIDE. [Suspect]
     Active Substance: METHAMPHETAMINE HYDROCHLORIDE
     Dosage: ROUTE: INGESTION + UNKNOWN
  2. COZAAR [Suspect]
     Active Substance: LOSARTAN POTASSIUM
     Dosage: ROUTE: INGESTION + UNKNOWN
  3. AMLODIPINE [Suspect]
     Active Substance: AMLODIPINE BESYLATE
     Dosage: ROUTE: INGESTION + UNKNOWN
  4. ATENOLOL. [Suspect]
     Active Substance: ATENOLOL
     Dosage: ROUTE: INGESTION + UNKNOWN
  5. HYDROCHLOROTHIAZIDE. [Suspect]
     Active Substance: HYDROCHLOROTHIAZIDE
     Dosage: ROUTE: INGESTION + UNKNOWN
  6. CYCLOBENZAPRINE HYDROCHLORIDE. [Suspect]
     Active Substance: CYCLOBENZAPRINE HYDROCHLORIDE
     Dosage: ROUTE: INGESTION + UNKNOWN
  7. DIPHENHYDRAMINE. [Suspect]
     Active Substance: DIPHENHYDRAMINE
     Dosage: ROUTE: INGESTION + UNKNOWN

REACTIONS (1)
  - Adverse event [Fatal]
